FAERS Safety Report 9131129 (Version 2)
Quarter: 2013Q1

REPORT INFORMATION
  Report Type: Spontaneous
  Country: US (occurrence: US)
  Receive Date: 20130301
  Receipt Date: 20130306
  Transmission Date: 20140127
  Serious: No
  Sender: FDA-Public Use
  Company Number: US-VERTEX PHARMACEUTICALS INC.-2013-002844

PATIENT
  Age: 46 Year
  Sex: Female
  Weight: 75 kg

DRUGS (3)
  1. INCIVEK [Suspect]
     Indication: HEPATITIS C
     Dosage: 750 MG, TID
     Route: 048
     Dates: start: 20130125
  2. RIBAVIRIN [Suspect]
     Indication: HEPATITIS C
     Dosage: 600MG AM, 400MG PM
     Route: 048
     Dates: start: 20130125
  3. PEGASYS [Suspect]
     Indication: HEPATITIS C
     Dosage: 180 ?G, QW
     Route: 058
     Dates: start: 20130125

REACTIONS (10)
  - Bronchitis [Not Recovered/Not Resolved]
  - White blood cell count decreased [Not Recovered/Not Resolved]
  - Constipation [Not Recovered/Not Resolved]
  - Fatigue [Not Recovered/Not Resolved]
  - Rash papular [Not Recovered/Not Resolved]
  - Rash [Recovered/Resolved]
  - Haemorrhoids [Not Recovered/Not Resolved]
  - Proctalgia [Not Recovered/Not Resolved]
  - Nausea [Not Recovered/Not Resolved]
  - Pruritus [Not Recovered/Not Resolved]
